FAERS Safety Report 17521145 (Version 2)
Quarter: 2020Q1

REPORT INFORMATION
  Report Type: Spontaneous
  Country: JP (occurrence: JP)
  Receive Date: 20200310
  Receipt Date: 20200317
  Transmission Date: 20200409
  Serious: Yes (Hospitalization, Other)
  Sender: FDA-Public Use
  Company Number: JP-PFIZER INC-2020098167

PATIENT
  Age: 62 Year
  Sex: Female

DRUGS (4)
  1. PACLITAXEL. [Suspect]
     Active Substance: PACLITAXEL
     Indication: CERVIX CARCINOMA STAGE III
     Dosage: 63.5 MG/KG, CYCLIC (PACLITAXEL ALONE ON DAYS 8 AND 15)
  2. CISPLATIN. [Suspect]
     Active Substance: CISPLATIN
     Indication: CERVIX CARCINOMA STAGE III
     Dosage: 63.5 MG/KG, CYCLIC (ON DAY 1)
  3. DEXAMETHASONE. [Suspect]
     Active Substance: DEXAMETHASONE
     Indication: STEROID THERAPY
     Dosage: 16.5 MG, UNK, (ON DAYS 1, 8 AND 15)
  4. DEXAMETHASONE. [Suspect]
     Active Substance: DEXAMETHASONE
     Dosage: 13.2 MG, UNK (DAY 2)

REACTIONS (2)
  - Strongyloidiasis [Recovered/Resolved]
  - Acute respiratory distress syndrome [Recovering/Resolving]
